FAERS Safety Report 4293066-3 (Version None)
Quarter: 2004Q1

REPORT INFORMATION
  Report Type: 
  Country: None (occurrence: None)
  Receive Date: 20040212
  Receipt Date: 20020327
  Transmission Date: 20041129
  Serious: Yes (Other)
  Sender: FDA-Public Use
  Company Number: US-GLAXOSMITHKLINE-A0364842A

PATIENT
  Age: 34 Year
  Sex: Male

DRUGS (16)
  1. PAXIL [Suspect]
     Indication: PANIC DISORDER
     Route: 048
     Dates: start: 19970601, end: 20020101
  2. LOVASTATIN [Suspect]
     Dosage: 20MG AT NIGHT
     Route: 065
     Dates: end: 20020118
  3. EFFEXOR [Suspect]
     Dosage: 1CAP AT NIGHT
     Route: 048
     Dates: start: 20010815
  4. ATARAX [Concomitant]
     Dosage: 25MG THREE TIMES PER DAY
  5. CATAPRES [Concomitant]
     Dosage: .2MG THREE TIMES PER DAY
  6. TENORMIN [Concomitant]
     Dosage: 100MG PER DAY
  7. ZOCOR [Concomitant]
     Dosage: 20MG PER DAY
  8. BENADRYL [Concomitant]
     Indication: PANIC ATTACK
     Dosage: 50MG AS REQUIRED
  9. ATIVAN [Concomitant]
     Indication: PANIC DISORDER
     Dosage: 1MG AS REQUIRED
  10. ASPIRIN [Concomitant]
     Dosage: 325MG AS REQUIRED
  11. TRIAMTERENE [Concomitant]
     Dosage: 75MG PER DAY
  12. HYDROCHLOROTHIAZIDE [Concomitant]
     Dosage: 50MG PER DAY
  13. PIROXICAM [Concomitant]
     Dosage: 20MG PER DAY
     Route: 048
  14. MAXZIDE [Concomitant]
     Route: 048
  15. BUSPAR [Concomitant]
  16. IBUPROFEN [Concomitant]
     Dosage: 600MG AS REQUIRED

REACTIONS (22)
  - ABDOMINAL DISTENSION [None]
  - ABDOMINAL PAIN UPPER [None]
  - AGITATION [None]
  - ALANINE AMINOTRANSFERASE INCREASED [None]
  - ANXIETY [None]
  - ASPARTATE AMINOTRANSFERASE INCREASED [None]
  - BLOOD ALKALINE PHOSPHATASE INCREASED [None]
  - DRUG DEPENDENCE [None]
  - DRUG WITHDRAWAL SYNDROME [None]
  - HEADACHE [None]
  - HEART RATE INCREASED [None]
  - HEPATIC TRAUMA [None]
  - HEPATOCELLULAR DAMAGE [None]
  - HYPERHIDROSIS [None]
  - INSOMNIA [None]
  - NERVOUSNESS [None]
  - NIGHTMARE [None]
  - PAIN [None]
  - PANIC ATTACK [None]
  - SEXUAL DYSFUNCTION [None]
  - TREMOR [None]
  - VOMITING [None]
